FAERS Safety Report 7462350-4 (Version None)
Quarter: 2011Q2

REPORT INFORMATION
  Report Type: 
  Country: None (occurrence: None)
  Receive Date: 20110506
  Receipt Date: 20110415
  Transmission Date: 20111010
  Serious: Yes (Hospitalization)
  Sender: FDA-Public Use
  Company Number: US-BAYER-201030621NA

PATIENT
  Age: 36 Year
  Sex: Female
  Weight: 68.027 kg

DRUGS (6)
  1. MICROGESTIN 1.5/30 [Concomitant]
     Indication: CONTRACEPTION
     Dosage: UNK
     Dates: start: 20051201, end: 20060301
  2. AMOXICILLIN [Concomitant]
     Dosage: 500 MG, UNK
  3. YASMIN [Suspect]
     Indication: ORAL CONTRACEPTION
     Route: 048
     Dates: start: 20060401, end: 20060603
  4. HYDROCODONE BITARTRATE [Concomitant]
     Dosage: 5 MG, UNK
  5. ALPRAZOLAM [Concomitant]
     Dosage: 0.25 MG, UNK
  6. APAP TAB [Concomitant]
     Dosage: 500 MG, UNK

REACTIONS (3)
  - DEEP VEIN THROMBOSIS [None]
  - PNEUMONIA [None]
  - PULMONARY EMBOLISM [None]
